FAERS Safety Report 5775225-3 (Version None)
Quarter: 2008Q2

REPORT INFORMATION
  Report Type: 
  Country: None (occurrence: None)
  Receive Date: 20080617
  Receipt Date: 20080612
  Transmission Date: 20081010
  Serious: Yes (Other)
  Sender: FDA-Public Use
  Company Number: B0525109A

PATIENT
  Age: 80 Year
  Sex: Male

DRUGS (1)
  1. ASMOL [Suspect]
     Indication: DRUG USE FOR UNKNOWN INDICATION
     Route: 055
     Dates: start: 20070705

REACTIONS (1)
  - VISUAL ACUITY REDUCED [None]
